FAERS Safety Report 5825545-9 (Version None)
Quarter: 2008Q3

REPORT INFORMATION
  Report Type: 
  Country: None (occurrence: None)
  Receive Date: 20080729
  Receipt Date: 20080724
  Transmission Date: 20090109
  Serious: Yes (Death, Hospitalization)
  Sender: FDA-Public Use
  Company Number: MX-ASTRAZENECA-2008UW07997

PATIENT
  Age: 80 Year
  Sex: Female
  Weight: 30.4 kg

DRUGS (2)
  1. CRESTOR [Suspect]
     Indication: HYPERCHOLESTEROLAEMIA
     Route: 048
     Dates: start: 20050901, end: 20060727
  2. SPASMOPRIV [Suspect]
     Indication: MUSCLE SPASMS
     Route: 048
     Dates: start: 20060601, end: 20060727

REACTIONS (2)
  - RENAL FAILURE [None]
  - RHABDOMYOLYSIS [None]
